FAERS Safety Report 20778468 (Version 1)
Quarter: 2022Q2

REPORT INFORMATION
  Report Type: Spontaneous
  Country: US (occurrence: US)
  Receive Date: 20220503
  Receipt Date: 20220503
  Transmission Date: 20220721
  Serious: No
  Sender: FDA-Public Use
  Company Number: US-AMNEAL PHARMACEUTICALS-2022-AMRX-00044

PATIENT
  Sex: Male

DRUGS (1)
  1. VIGABATRIN [Suspect]
     Active Substance: VIGABATRIN
     Indication: Tuberous sclerosis complex
     Dosage: 500 MILLIGRAM, 2X/DAY
     Route: 048
     Dates: start: 2021

REACTIONS (4)
  - Ear infection [Unknown]
  - Nasal congestion [Unknown]
  - Product dose omission issue [Unknown]
  - Product use in unapproved indication [Unknown]
